FAERS Safety Report 5122988-6 (Version None)
Quarter: 2006Q4

REPORT INFORMATION
  Report Type: 
  Country: None (occurrence: None)
  Receive Date: 20061004
  Receipt Date: 20061004
  Transmission Date: 20070319
  Serious: Yes (Life-Threatening)
  Sender: FDA-Public Use
  Company Number: None

PATIENT
  Sex: Male
  Weight: 85.7298 kg

DRUGS (3)
  1. AVELOX [Suspect]
     Indication: COUGH
     Dosage: ONE TABLET DAILY PO
     Route: 048
     Dates: start: 20060920, end: 20060928
  2. AVELOX [Suspect]
     Indication: DYSPNOEA
     Dosage: ONE TABLET DAILY PO
     Route: 048
     Dates: start: 20060920, end: 20060928
  3. TUSSIONEX COUGH SYRUP [Concomitant]

REACTIONS (6)
  - ALANINE AMINOTRANSFERASE INCREASED [None]
  - ASPARTATE AMINOTRANSFERASE INCREASED [None]
  - BLOOD ALKALINE PHOSPHATASE INCREASED [None]
  - BLOOD BILIRUBIN INCREASED [None]
  - NAUSEA [None]
  - PYREXIA [None]
